FAERS Safety Report 11430787 (Version 1)
Quarter: 2015Q3

REPORT INFORMATION
  Report Type: Report from Study
  Country: CA (occurrence: CA)
  Receive Date: 20150828
  Receipt Date: 20150828
  Transmission Date: 20151125
  Serious: Yes (Other)
  Sender: FDA-Public Use
  Company Number: CA-TEVA-588795USA

PATIENT
  Sex: Female

DRUGS (9)
  1. VITAMIN D [Concomitant]
     Active Substance: CHOLECALCIFEROL
  2. PROMETRIUM [Concomitant]
     Active Substance: PROGESTERONE
  3. COPAXONE [Suspect]
     Active Substance: GLATIRAMER ACETATE
     Indication: MULTIPLE SCLEROSIS
     Dosage: 20 MILLIGRAM DAILY; COPAXONE 20MG/ML
     Route: 058
     Dates: start: 20150623, end: 201508
  4. RITALIN [Interacting]
     Active Substance: METHYLPHENIDATE HYDROCHLORIDE
     Indication: PRODUCT USED FOR UNKNOWN INDICATION
     Route: 065
     Dates: end: 201508
  5. VITAMIN C [Concomitant]
     Active Substance: ASCORBIC ACID
  6. MAGNESIUM [Concomitant]
     Active Substance: MAGNESIUM
  7. CALCIUM [Concomitant]
     Active Substance: CALCIUM
  8. MULTIVITAMIN [Concomitant]
     Active Substance: VITAMINS
  9. PROBIOTIC [Concomitant]
     Active Substance: PROBIOTICS NOS

REACTIONS (2)
  - Self-injurious ideation [Recovering/Resolving]
  - Drug interaction [Recovered/Resolved]
